FAERS Safety Report 5353448-5 (Version None)
Quarter: 2007Q2

REPORT INFORMATION
  Report Type: 
  Country: None (occurrence: None)
  Receive Date: 20070612
  Receipt Date: 20070601
  Transmission Date: 20071010
  Serious: Yes (Other)
  Sender: FDA-Public Use
  Company Number: PHEH2007US06687

PATIENT
  Age: 51 Year
  Sex: Female
  Weight: 67.12 kg

DRUGS (1)
  1. ZELNORM [Suspect]
     Indication: IRRITABLE BOWEL SYNDROME
     Dosage: 6 MG, QD
     Route: 048
     Dates: start: 20040501, end: 20070428

REACTIONS (5)
  - CARDIAC VALVE DISEASE [None]
  - CHEST PAIN [None]
  - HEART RATE IRREGULAR [None]
  - PALPITATIONS [None]
  - VENTRICULAR EXTRASYSTOLES [None]
